FAERS Safety Report 19972752 (Version 2)
Quarter: 2021Q4

REPORT INFORMATION
  Report Type: Spontaneous
  Country: JP (occurrence: JP)
  Receive Date: 20211019
  Receipt Date: 20211118
  Transmission Date: 20220303
  Serious: Yes (Life-Threatening, Other)
  Sender: FDA-Public Use
  Company Number: JP-MSD-M2019-02943

PATIENT
  Age: 69 Year
  Sex: Male
  Weight: 60 kg

DRUGS (13)
  1. ROCURONIUM BROMIDE [Suspect]
     Active Substance: ROCURONIUM BROMIDE
     Indication: General anaesthesia
     Dosage: 130 MILLIGRAM, UNKNOWN
     Route: 042
     Dates: start: 20190205
  2. BRIDION [Suspect]
     Active Substance: SUGAMMADEX
     Indication: Neuromuscular blockade reversal
     Dosage: 200 MILLIGRAM, UNKNOWN
     Route: 040
     Dates: start: 20190205
  3. BRIDION [Suspect]
     Active Substance: SUGAMMADEX
     Dosage: 200 MILLIGRAM
     Route: 042
     Dates: start: 20190205
  4. PROPOFOL [Concomitant]
     Active Substance: PROPOFOL
     Indication: General anaesthesia
     Dosage: 70 MILLIGRAM
     Route: 042
     Dates: start: 20190205
  5. DESFLURANE [Concomitant]
     Active Substance: DESFLURANE
     Indication: General anaesthesia
     Dosage: 91 MILLILITER
     Dates: start: 20190205
  6. DESFLURANE [Concomitant]
     Active Substance: DESFLURANE
     Dosage: 4 PERCENT
     Route: 065
  7. REMIFENTANIL HYDROCHLORIDE [Concomitant]
     Active Substance: REMIFENTANIL HYDROCHLORIDE
     Indication: General anaesthesia
     Dosage: 20 MILLILITER
     Route: 041
     Dates: start: 20190205
  8. REMIFENTANIL HYDROCHLORIDE [Concomitant]
     Active Substance: REMIFENTANIL HYDROCHLORIDE
     Dosage: UNK
     Route: 065
  9. REMIFENTANIL HYDROCHLORIDE [Concomitant]
     Active Substance: REMIFENTANIL HYDROCHLORIDE
     Dosage: UNK
     Route: 065
  10. EPHEDRINE HYDROCHLORIDE [Concomitant]
     Active Substance: EPHEDRINE HYDROCHLORIDE
     Indication: Blood pressure increased
     Dosage: 8 MILLIGRAM
     Route: 040
     Dates: start: 20190205
  11. VICCILLIN [AMPICILLIN SODIUM] [Concomitant]
     Indication: Infection prophylaxis
     Dosage: 2 GRAM
     Route: 041
     Dates: start: 20190205
  12. FENTANYL CITRATE [Concomitant]
     Active Substance: FENTANYL CITRATE
     Indication: General anaesthesia
     Dosage: 300 MICROGRAM
     Route: 040
     Dates: start: 20190205
  13. HUMULIN R [Concomitant]
     Active Substance: INSULIN HUMAN
     Indication: Blood glucose increased
     Dosage: UNK
     Route: 058
     Dates: end: 20190204

REACTIONS (3)
  - Respiratory arrest [Recovered/Resolved]
  - Recurrence of neuromuscular blockade [Recovering/Resolving]
  - Overdose [Unknown]

NARRATIVE: CASE EVENT DATE: 20190205
